FAERS Safety Report 15768560 (Version 3)
Quarter: 2019Q1

REPORT INFORMATION
  Report Type: Spontaneous
  Country: US (occurrence: US)
  Receive Date: 20181227
  Receipt Date: 20190122
  Transmission Date: 20190417
  Serious: Yes (Other)
  Sender: FDA-Public Use
  Company Number: US-AMGEN-USASP2018184888

PATIENT
  Age: 62 Year
  Sex: Female
  Weight: 84.72 kg

DRUGS (9)
  1. ACIDOZOL [Concomitant]
     Dosage: 1500 MG, 1 DROP DAILY
     Route: 065
  2. PREDNISONE. [Concomitant]
     Active Substance: PREDNISONE
     Dosage: 5 MG, QD
  3. NEXIUM [Concomitant]
     Active Substance: ESOMEPRAZOLE MAGNESIUM
     Dosage: 40 MG, QD
  4. ENBREL [Suspect]
     Active Substance: ETANERCEPT
     Indication: INFECTION
  5. MULTIPLE VITAMINS [Concomitant]
     Active Substance: VITAMINS
     Dosage: UNK UNK, QD
  6. ASPIRIN EC [Concomitant]
     Active Substance: ASPIRIN
     Dosage: 650 MG, TID
  7. PLAQUENIL [Concomitant]
     Active Substance: HYDROXYCHLOROQUINE SULFATE
     Dosage: 200 MG, TID
  8. LEVOTHYROXINE SODIUM. [Concomitant]
     Active Substance: LEVOTHYROXINE SODIUM
     Dosage: 100 MUG, QD
  9. ENBREL [Suspect]
     Active Substance: ETANERCEPT
     Indication: RHEUMATOID ARTHRITIS
     Dosage: 50 MG, QWK
     Route: 065
     Dates: start: 20130809, end: 20141231

REACTIONS (11)
  - Foot deformity [Unknown]
  - Paraesthesia [Unknown]
  - Rheumatoid arthritis [Unknown]
  - Cellulitis [Unknown]
  - Subcutaneous abscess [Unknown]
  - Bursitis [Unknown]
  - Drug hypersensitivity [Unknown]
  - Tendonitis [Unknown]
  - Upper respiratory tract infection [Unknown]
  - Dysuria [Recovered/Resolved]
  - Hypoaesthesia oral [Unknown]

NARRATIVE: CASE EVENT DATE: 201901
